FAERS Safety Report 6388673-8 (Version None)
Quarter: 2009Q4

REPORT INFORMATION
  Report Type: 
  Country: None (occurrence: None)
  Receive Date: 20091005
  Receipt Date: 20090924
  Transmission Date: 20100525
  Serious: Yes (Other)
  Sender: FDA-Public Use
  Company Number: US-JNJFOC-20090908169

PATIENT
  Age: 87 Year
  Sex: Male
  Weight: 77.11 kg

DRUGS (4)
  1. EXTRA STRENGTH TYLENOL [Suspect]
     Route: 048
  2. EXTRA STRENGTH TYLENOL [Suspect]
     Indication: ARTHRALGIA
     Route: 048
  3. LEVOXYL [Concomitant]
     Indication: THYROID DISORDER
  4. DOXAZOSIN MESYLATE [Concomitant]
     Indication: PROSTATOMEGALY

REACTIONS (4)
  - DIZZINESS [None]
  - FATIGUE [None]
  - INFLUENZA LIKE ILLNESS [None]
  - TRANSMISSION OF AN INFECTIOUS AGENT VIA A MEDICINAL PRODUCT [None]
